FAERS Safety Report 5033216-4 (Version None)
Quarter: 2006Q2

REPORT INFORMATION
  Report Type: 
  Country: None (occurrence: None)
  Receive Date: 20060622
  Receipt Date: 20060609
  Transmission Date: 20061013
  Serious: Yes (Hospitalization)
  Sender: FDA-Public Use
  Company Number: SE-MERCK-0606SWE00005

PATIENT
  Age: 74 Year
  Sex: Male

DRUGS (22)
  1. COZAAR [Suspect]
     Indication: CARDIAC FAILURE
     Route: 048
     Dates: start: 19990101, end: 20060201
  2. COZAAR [Suspect]
     Route: 048
     Dates: start: 20060201, end: 20060305
  3. METOPROLOL TARTRATE [Concomitant]
     Route: 065
  4. RISPERIDONE [Concomitant]
     Route: 065
  5. FINASTERIDE [Concomitant]
     Route: 065
  6. GOSERELIN ACETATE [Concomitant]
     Route: 065
  7. OMEPRAZOLE [Concomitant]
     Route: 065
  8. ACETAMINOPHEN [Concomitant]
     Route: 065
  9. DEXAMETHASONE [Concomitant]
     Route: 065
  10. SODIUM PICOSULFATE [Concomitant]
     Route: 065
  11. NITROGLYCERIN [Concomitant]
     Route: 065
  12. SODIUM FLUORIDE [Concomitant]
     Route: 065
  13. ECONAZOLE NITRATE [Concomitant]
     Route: 065
  14. FUROSEMIDE [Concomitant]
     Route: 065
  15. NITROGLYCERIN [Concomitant]
     Route: 065
  16. LACTULOSE [Concomitant]
     Route: 065
  17. SORBITOL [Concomitant]
     Route: 065
  18. OXAZEPAM [Concomitant]
     Route: 065
  19. ISOSORBIDE MONONITRATE [Concomitant]
     Route: 065
  20. ASPIRIN [Concomitant]
     Route: 065
  21. ALLOPURINOL [Concomitant]
     Route: 065
  22. CARBOMER [Concomitant]
     Route: 065

REACTIONS (2)
  - CONFUSIONAL STATE [None]
  - HALLUCINATION [None]
